FAERS Safety Report 4450240-0 (Version None)
Quarter: 2004Q3

REPORT INFORMATION
  Report Type: 
  Country: None (occurrence: None)
  Receive Date: 20040914
  Receipt Date: 20040903
  Transmission Date: 20050211
  Serious: Yes (Hospitalization, Other)
  Sender: FDA-Public Use
  Company Number: 2004224980DE

PATIENT
  Age: 53 Year
  Sex: Female

DRUGS (6)
  1. ZYVOX [Suspect]
     Indication: PNEUMONIA STAPHYLOCOCCAL
     Dosage: 600 MG, DAILY, IV DRIP
     Route: 041
     Dates: start: 20040705, end: 20040709
  2. RAMIPRIL [Suspect]
     Dosage: 10 MG, DAILY, ORAL
     Route: 048
     Dates: start: 20040712, end: 20040721
  3. CORDAREX [Concomitant]
  4. PANTOZOL (PANTOPRAZOLE SODIUM) [Concomitant]
  5. ZIENAM (CILASTATIN SODIUM IMIPENEM) [Concomitant]
  6. GENTAMICIN [Concomitant]

REACTIONS (10)
  - CHOLESTASIS [None]
  - ENTEROCOCCAL INFECTION [None]
  - ESCHERICHIA URINARY TRACT INFECTION [None]
  - HEPATOTOXICITY [None]
  - HYPERTENSIVE CRISIS [None]
  - LIVER DISORDER [None]
  - NORMOCHROMIC NORMOCYTIC ANAEMIA [None]
  - OEDEMATOUS PANCREATITIS [None]
  - PROTHROMBIN TIME PROLONGED [None]
  - THROMBOCYTOPENIA [None]
